FAERS Safety Report 8427418-4 (Version None)
Quarter: 2012Q2

REPORT INFORMATION
  Report Type: 
  Country: None (occurrence: None)
  Receive Date: 20120323
  Receipt Date: 20110212
  Transmission Date: 20120825
  Serious: Yes (Hospitalization)
  Sender: FDA-Public Use
  Company Number: 163-21880-11021681

PATIENT
  Age: 85 Year
  Sex: Female

DRUGS (2)
  1. REVLIMID [Suspect]
     Indication: MULTIPLE MYELOMA
     Dosage: 5 MG, DAILY FOR 21 DAYS, PO ; PO
     Route: 048
     Dates: start: 20110101
  2. REVLIMID [Suspect]
     Indication: MULTIPLE MYELOMA
     Dosage: 5 MG, DAILY FOR 21 DAYS, PO ; PO
     Route: 048
     Dates: start: 20090724, end: 20110117

REACTIONS (2)
  - VOMITING [None]
  - THROMBOSIS [None]
